FAERS Safety Report 8552766 (Version 3)
Quarter: 2013Q1

REPORT INFORMATION
  Report Type: Report from Study
  Country: DE (occurrence: DE)
  Receive Date: 20120508
  Receipt Date: 20130226
  Transmission Date: 20140127
  Serious: Yes (Hospitalization)
  Sender: FDA-Public Use
  Company Number: DE-ROCHE-1066457

PATIENT
  Age: 53 Year
  Sex: Male
  Weight: 89.8 kg

DRUGS (7)
  1. ALISPORIVIR [Suspect]
     Indication: HEPATITIS C
     Route: 048
     Dates: start: 20111228, end: 20120120
  2. RIBAVIRIN [Suspect]
     Indication: HEPATITIS C
     Route: 065
     Dates: start: 20111228, end: 20120120
  3. PEG-INTERFERON ALFA 2A [Suspect]
     Indication: HEPATITIS C
     Route: 065
     Dates: start: 20111228, end: 20120120
  4. ASS [Concomitant]
     Route: 065
     Dates: start: 201001, end: 20120120
  5. HYDROCHLOROTHIAZIDE [Concomitant]
     Route: 065
     Dates: start: 201001, end: 20100120
  6. HYDROCHLOROTHIAZIDE [Concomitant]
     Route: 065
     Dates: start: 20120117
  7. DELIX [Concomitant]
     Route: 065

REACTIONS (2)
  - Hypertensive crisis [Recovered/Resolved]
  - Hypertensive heart disease [Unknown]
